FAERS Safety Report 12833800 (Version 1)
Quarter: 2016Q4

REPORT INFORMATION
  Report Type: Report from Study
  Country: CD (occurrence: CD)
  Receive Date: 20161010
  Receipt Date: 20161010
  Transmission Date: 20170207
  Serious: Yes (Hospitalization)
  Sender: FDA-Public Use
  Company Number: PHHY2016CD124920

PATIENT
  Age: 38 Year
  Sex: Female
  Weight: 57 kg

DRUGS (2)
  1. GLIVEC [Suspect]
     Active Substance: IMATINIB MESYLATE
     Indication: CHRONIC MYELOID LEUKAEMIA
     Dosage: 600 MG, QD
     Route: 048
     Dates: start: 20160704, end: 20160822
  2. GLIVEC [Suspect]
     Active Substance: IMATINIB MESYLATE
     Dosage: 400 MG, QD
     Route: 048

REACTIONS (13)
  - Anaemia [Unknown]
  - Overweight [Recovered/Resolved]
  - Leukopenia [Unknown]
  - Oedema peripheral [Recovering/Resolving]
  - Oedema [Recovered/Resolved]
  - Splenomegaly [Unknown]
  - Generalised oedema [Recovered/Resolved]
  - Asthenia [Unknown]
  - Pyrexia [Unknown]
  - Elephantiasis [Unknown]
  - Pleural effusion [Recovering/Resolving]
  - Thrombocytopenia [Unknown]
  - Ascites [Recovered/Resolved]

NARRATIVE: CASE EVENT DATE: 201608
